FAERS Safety Report 15547820 (Version 9)
Quarter: 2020Q1

REPORT INFORMATION
  Report Type: Spontaneous
  Country: US (occurrence: US)
  Receive Date: 20181024
  Receipt Date: 20200306
  Transmission Date: 20200409
  Serious: Yes (Hospitalization)
  Sender: FDA-Public Use
  Company Number: US-ACTELION-A-US2018-180697

PATIENT
  Age: 68 Year
  Sex: Female
  Weight: 45.35 kg

DRUGS (6)
  1. REMODULIN [Suspect]
     Active Substance: TREPROSTINIL
     Dosage: UNK
     Route: 065
     Dates: start: 20181012
  2. REMODULIN [Suspect]
     Active Substance: TREPROSTINIL
     Dosage: 11 NG/KG, PER MIN
     Route: 042
  3. NIFEDIPINE. [Concomitant]
     Active Substance: NIFEDIPINE
  4. WARFARIN [Concomitant]
     Active Substance: WARFARIN
  5. REMODULIN [Suspect]
     Active Substance: TREPROSTINIL
     Indication: PRODUCT USED FOR UNKNOWN INDICATION
     Dosage: 9 NG/KG, PER MIN
     Route: 042
  6. OPSUMIT [Suspect]
     Active Substance: MACITENTAN
     Indication: PULMONARY HYPERTENSION
     Dosage: 10 MG, QD
     Route: 048

REACTIONS (27)
  - Muscle tightness [Unknown]
  - Catheter management [Unknown]
  - Catheter site infection [Unknown]
  - Urinary tract infection [Unknown]
  - Injection site erythema [Unknown]
  - Hypoxia [Unknown]
  - Fatigue [Unknown]
  - Injection site swelling [Unknown]
  - Product dose omission [Unknown]
  - Pulmonary arterial hypertension [Unknown]
  - Injection site pain [Unknown]
  - Hypovolaemia [Unknown]
  - Injection site inflammation [Unknown]
  - Abdominal pain [Unknown]
  - Dyspnoea [Unknown]
  - Headache [Unknown]
  - Fall [Unknown]
  - Diarrhoea [Unknown]
  - Hypotension [Unknown]
  - Nausea [Unknown]
  - Cardiovascular function test [Unknown]
  - Disease complication [Unknown]
  - Dyspnoea exertional [Not Recovered/Not Resolved]
  - Arthralgia [Unknown]
  - Injection site infection [Unknown]
  - Flushing [Unknown]
  - Condition aggravated [Unknown]

NARRATIVE: CASE EVENT DATE: 20181011
